FAERS Safety Report 12463993 (Version 1)
Quarter: 2016Q2

REPORT INFORMATION
  Report Type: Spontaneous
  Country: TR (occurrence: TR)
  Receive Date: 20160614
  Receipt Date: 20160614
  Transmission Date: 20160815
  Serious: Yes (Other)
  Sender: FDA-Public Use
  Company Number: PHHY2016TR080005

PATIENT
  Age: 34 Year
  Sex: Male

DRUGS (1)
  1. VOLTAREN [Suspect]
     Active Substance: DICLOFENAC SODIUM
     Indication: MYALGIA
     Dosage: 75 MG, UNK
     Route: 030

REACTIONS (7)
  - Eyelid oedema [Unknown]
  - Drug hypersensitivity [Recovered/Resolved]
  - Lip swelling [Unknown]
  - Blister [Unknown]
  - Pruritus [Unknown]
  - Wheezing [Unknown]
  - Dyspnoea [Unknown]

NARRATIVE: CASE EVENT DATE: 20160314
